FAERS Safety Report 14052914 (Version 1)
Quarter: 2017Q4

REPORT INFORMATION
  Report Type: Spontaneous
  Country: US (occurrence: None)
  Receive Date: 20171005
  Receipt Date: 20171005
  Transmission Date: 20180321
  Serious: No
  Sender: FDA-Public Use
  Company Number: None

PATIENT
  Age: 46 Year
  Sex: Female

DRUGS (1)
  1. ENBREL [Suspect]
     Active Substance: ETANERCEPT
     Route: 058
     Dates: start: 20170710, end: 20170828

REACTIONS (3)
  - Injection site erythema [None]
  - Pruritus [None]
  - Injection site pruritus [None]

NARRATIVE: CASE EVENT DATE: 20171002
